FAERS Safety Report 5514888-4 (Version None)
Quarter: 2007Q4

REPORT INFORMATION
  Report Type: 
  Country: None (occurrence: None)
  Receive Date: 20071113
  Receipt Date: 20060921
  Transmission Date: 20080405
  Serious: No
  Sender: FDA-Public Use
  Company Number: A0620911A

PATIENT
  Age: 71 Year
  Sex: Female

DRUGS (2)
  1. COREG [Suspect]
     Indication: DRUG USE FOR UNKNOWN INDICATION
     Route: 048
  2. NORVASC [Suspect]
     Indication: DRUG USE FOR UNKNOWN INDICATION
     Route: 065

REACTIONS (2)
  - CARDIAC DISORDER [None]
  - RENAL DISORDER [None]
